FAERS Safety Report 25978778 (Version 1)
Quarter: 2025Q4

REPORT INFORMATION
  Report Type: Spontaneous
  Country: US (occurrence: US)
  Receive Date: 20251030
  Receipt Date: 20251030
  Transmission Date: 20260117
  Serious: No
  Sender: TRIS PHARMA, INC.
  Company Number: US-TRIS PHARMA, INC.-25US012131

PATIENT

DRUGS (4)
  1. DEXTROMETHORPHAN HYDROBROMIDE [Suspect]
     Active Substance: DEXTROMETHORPHAN HYDROBROMIDE
     Indication: Cough
     Dosage: 30 MILLIGRAM, SINGLE
     Route: 048
     Dates: start: 20251020, end: 20251020
  2. DEXTROMETHORPHAN HYDROBROMIDE [Suspect]
     Active Substance: DEXTROMETHORPHAN HYDROBROMIDE
     Dosage: 30 MILLIGRAM, PRN
     Route: 048
     Dates: end: 202507
  3. LORATADINE [Concomitant]
     Active Substance: LORATADINE
     Indication: Product used for unknown indication
     Dosage: UNK
     Dates: start: 202508
  4. NAC 500 [Concomitant]
     Indication: Product used for unknown indication
     Dosage: UNK
     Dates: start: 202505

REACTIONS (3)
  - Expired product administered [Unknown]
  - Underdose [Unknown]
  - Drug ineffective [Unknown]

NARRATIVE: CASE EVENT DATE: 20251020
